FAERS Safety Report 5510624-6 (Version None)
Quarter: 2007Q4

REPORT INFORMATION
  Report Type: 
  Country: None (occurrence: None)
  Receive Date: 20071108
  Receipt Date: 20071105
  Transmission Date: 20080405
  Serious: Yes (Death)
  Sender: FDA-Public Use
  Company Number: US-BOEHRINGER INGELHEIM PHARMACEUTICALS, INC.-2007-BP-23944BP

PATIENT

DRUGS (2)
  1. AGGRENOX [Suspect]
  2. STATIN [Suspect]

REACTIONS (1)
  - CEREBRAL HAEMORRHAGE [None]
